FAERS Safety Report 7618726-5 (Version None)
Quarter: 2011Q3

REPORT INFORMATION
  Report Type: 
  Country: None (occurrence: None)
  Receive Date: 20110718
  Receipt Date: 20110711
  Transmission Date: 20111222
  Serious: Yes (Other)
  Sender: FDA-Public Use
  Company Number: US-GENZYME-THYM-1002602

PATIENT
  Sex: Male

DRUGS (2)
  1. THYMOGLOBULIN [Suspect]
     Indication: PROPHYLAXIS AGAINST TRANSPLANT REJECTION
     Dosage: 150 MG, UNK
     Route: 042
     Dates: start: 20110707, end: 20110707
  2. THYMOGLOBULIN [Suspect]
     Dosage: 125 MG, UNK
     Route: 042
     Dates: start: 20110709, end: 20110709

REACTIONS (1)
  - HYPOXIA [None]
